FAERS Safety Report 8577534-1 (Version None)
Quarter: 2012Q3

REPORT INFORMATION
  Report Type: 
  Country: None (occurrence: None)
  Receive Date: 20120725
  Receipt Date: 20120716
  Transmission Date: 20120928
  Serious: Yes (Hospitalization)
  Sender: FDA-Public Use
  Company Number: ACO_29610_2012

PATIENT
  Age: 60 Year
  Sex: Female

DRUGS (4)
  1. AMANTADINE HCL [Concomitant]
  2. FAMPYRA (DALFAMPRIDINE) TABLET, 10MG [Suspect]
     Indication: MULTIPLE SCLEROSIS
     Dosage: 10 MG, BID, ORAL ; 10 MG, BID, ORAL ; 10 MG, BID, ORAL
     Route: 048
     Dates: start: 20120208, end: 20120301
  3. FAMPYRA (DALFAMPRIDINE) TABLET, 10MG [Suspect]
     Indication: MULTIPLE SCLEROSIS
     Dosage: 10 MG, BID, ORAL ; 10 MG, BID, ORAL ; 10 MG, BID, ORAL
     Route: 048
     Dates: start: 20111114, end: 20120124
  4. FAMPYRA (DALFAMPRIDINE) TABLET, 10MG [Suspect]
     Indication: MULTIPLE SCLEROSIS
     Dosage: 10 MG, BID, ORAL ; 10 MG, BID, ORAL ; 10 MG, BID, ORAL
     Route: 048
     Dates: start: 20120301, end: 20120713

REACTIONS (4)
  - CYSTITIS [None]
  - LIVEDO RETICULARIS [None]
  - OEDEMA PERIPHERAL [None]
  - GAIT DISTURBANCE [None]
